FAERS Safety Report 24613614 (Version 1)
Quarter: 2024Q4

REPORT INFORMATION
  Report Type: Spontaneous
  Country: US (occurrence: US)
  Receive Date: 20241113
  Receipt Date: 20241113
  Transmission Date: 20250115
  Serious: No
  Sender: SANDOZ
  Company Number: US-SANDOZ-SDZ2024US094086

PATIENT
  Sex: Female

DRUGS (1)
  1. ESTRADIOL [Suspect]
     Active Substance: ESTRADIOL
     Indication: Product used for unknown indication
     Dosage: 0.1MG/24H 8TTS V1 US, 2 PATCHES A WEEK
     Route: 065

REACTIONS (4)
  - Product storage error [Unknown]
  - Incorrect dose administered [Unknown]
  - Product adhesion issue [Unknown]
  - Liquid product physical issue [Unknown]
